FAERS Safety Report 21838254 (Version 4)
Quarter: 2023Q4

REPORT INFORMATION
  Report Type: Spontaneous
  Country: US (occurrence: US)
  Receive Date: 20230109
  Receipt Date: 20231024
  Transmission Date: 20240110
  Serious: No
  Sender: FDA-Public Use
  Company Number: US-PFIZER INC-202300005155

PATIENT
  Age: 63 Year
  Sex: Female

DRUGS (6)
  1. BACTERIOSTATIC SODIUM CHLORIDE [Suspect]
     Active Substance: SODIUM CHLORIDE
     Indication: Hypotension
     Dosage: 1 L (1 L OF 0.9 PERCENT)
  2. BACTERIOSTATIC SODIUM CHLORIDE [Suspect]
     Active Substance: SODIUM CHLORIDE
     Dosage: 3 L
     Route: 042
     Dates: start: 20221129
  3. RP-3500 [Concomitant]
     Active Substance: RP-3500
     Indication: Neoplasm
     Dosage: 50 MILLIGRAM, QD,DAYS 5-7 OF WEEKS 1 AND 3 (SOLID ORAL FORMULATION)
     Route: 048
     Dates: start: 20211202
  4. RP-3500 [Concomitant]
     Active Substance: RP-3500
     Dosage: 80 MILLIGRAM, QD, DAYS 5-7 AND 19-21 (SOLID ORAL FORMULATION)
     Route: 048
     Dates: start: 20211202, end: 20221128
  5. RP-3500 [Concomitant]
     Active Substance: RP-3500
     Dosage: 80 MILLIGRAM, CYCLE 12, DOSE ESCALATION ON DAY 5 6, 7, 19, 20 AND 21(SOLID ORAL FORMULATION)
     Route: 048
     Dates: start: 20221114, end: 20221128
  6. TALAZOPARIB [Concomitant]
     Active Substance: TALAZOPARIB
     Indication: Neoplasm
     Dosage: 0.25 MILLIGRAM, QD DAYS 1-7 OF WEEKS 1 AND 3(SOLID ORAL)
     Route: 048
     Dates: start: 20211202, end: 20221128

REACTIONS (2)
  - Drug ineffective for unapproved indication [Unknown]
  - Off label use [Unknown]
